FAERS Safety Report 4726867-5 (Version None)
Quarter: 2005Q3

REPORT INFORMATION
  Report Type: 
  Country: None (occurrence: None)
  Receive Date: 20050726
  Receipt Date: 20050615
  Transmission Date: 20060218
  Serious: No
  Sender: FDA-Public Use
  Company Number: 11629

PATIENT
  Age: 44 Year
  Sex: Female

DRUGS (5)
  1. PACLITAXEL [Suspect]
  2. CARBOPLATIN [Suspect]
  3. ONDANSETRON [Concomitant]
  4. HORMONE REPLACEMENT THERAPY [Concomitant]
  5. PARACETAMOL [Concomitant]

REACTIONS (5)
  - ANGIONEUROTIC OEDEMA [None]
  - RASH [None]
  - STREPTOCOCCAL INFECTION [None]
  - URINARY TRACT INFECTION [None]
  - URTICARIA [None]
